FAERS Safety Report 24225453 (Version 1)
Quarter: 2024Q3

REPORT INFORMATION
  Report Type: Spontaneous
  Country: US (occurrence: US)
  Receive Date: 20240820
  Receipt Date: 20240820
  Transmission Date: 20241016
  Serious: Yes (Hospitalization, Other)
  Sender: NOVO NORDISK
  Company Number: US-NOVOPROD-1269479

PATIENT
  Age: 68 Year
  Sex: Female

DRUGS (1)
  1. TRESIBA [Suspect]
     Active Substance: INSULIN DEGLUDEC
     Indication: Type 2 diabetes mellitus
     Dosage: 5-6 UNITS A DAY; SLIDING SCALE
     Route: 058
     Dates: start: 2008

REACTIONS (4)
  - Colon cancer [Recovered/Resolved]
  - Myocardial infarction [Unknown]
  - Coronary artery bypass [Unknown]
  - Rotator cuff syndrome [Unknown]

NARRATIVE: CASE EVENT DATE: 20160101
